FAERS Safety Report 15691262 (Version 6)
Quarter: 2019Q1

REPORT INFORMATION
  Report Type: Spontaneous
  Country: US (occurrence: US)
  Receive Date: 20181205
  Receipt Date: 20190108
  Transmission Date: 20190417
  Serious: Yes (Other)
  Sender: FDA-Public Use
  Company Number: US-SA-2018SA330208

PATIENT
  Sex: Female

DRUGS (1)
  1. AUBAGIO [Suspect]
     Active Substance: TERIFLUNOMIDE
     Indication: MULTIPLE SCLEROSIS
     Dosage: 14 MG, QD
     Route: 048
     Dates: start: 20181011

REACTIONS (5)
  - Helicobacter infection [Unknown]
  - Anaemia [Unknown]
  - Gastric disorder [Unknown]
  - Gastritis [Unknown]
  - Anxiety [Unknown]

NARRATIVE: CASE EVENT DATE: 201811
